FAERS Safety Report 4277580-2 (Version None)
Quarter: 2004Q1

REPORT INFORMATION
  Report Type: 
  Country: None (occurrence: None)
  Receive Date: 20040121
  Receipt Date: 20040121
  Transmission Date: 20041129
  Serious: Yes (Other)
  Sender: FDA-Public Use
  Company Number: None

PATIENT
  Age: 41 Year
  Sex: Female
  Weight: 48.5 kg

DRUGS (2)
  1. CEFEPIME 2 GRAMS (BRISTOL-MYERS SQUIBB) [Suspect]
     Indication: LUNG INFECTION
     Dosage: 2 GMS Q12H IV
     Route: 042
     Dates: start: 20040113, end: 20040126
  2. CEFEPIME 2 GRAMS (BRISTOL-MYERS SQUIBB) [Suspect]
     Indication: PSEUDOMONAS INFECTION
     Dosage: 2 GMS Q12H IV
     Route: 042
     Dates: start: 20040113, end: 20040126

REACTIONS (1)
  - PRURITUS [None]
